FAERS Safety Report 8134085 (Version 3)
Quarter: 2014Q2

REPORT INFORMATION
  Report Type: Spontaneous
  Country: US (occurrence: US)
  Receive Date: 20110913
  Receipt Date: 20140613
  Transmission Date: 20141212
  Serious: Yes (Hospitalization, Other)
  Sender: FDA-Public Use
  Company Number: US-ASTRAZENECA-2011SE53640

PATIENT
  Age: 49 Year
  Sex: Male
  Weight: 93 kg

DRUGS (3)
  1. PRILOSEC OTC [Suspect]
     Dosage: TAKES UP SIX PRILOSEC PER DAY
     Route: 048
  2. NEXIUM [Suspect]
     Indication: GASTROOESOPHAGEAL REFLUX DISEASE
     Route: 048
     Dates: start: 2004
  3. METOPROLOL TARTRATE [Concomitant]
     Indication: BLOOD PRESSURE
     Dosage: TWO TIMES  A DAY
     Route: 048
     Dates: start: 2013

REACTIONS (13)
  - Road traffic accident [Recovered/Resolved]
  - Rib fracture [Recovered/Resolved]
  - Neck injury [Recovered/Resolved]
  - Myocardial infarction [Recovered/Resolved]
  - Gastrooesophageal reflux disease [Recovered/Resolved with Sequelae]
  - Sleep disorder due to a general medical condition [Unknown]
  - Pain [Unknown]
  - Dyspepsia [Unknown]
  - Insomnia [Unknown]
  - Drug ineffective [Unknown]
  - Extra dose administered [Unknown]
  - Intentional product misuse [Not Recovered/Not Resolved]
  - Drug dose omission [Unknown]
